FAERS Safety Report 8952728 (Version 3)
Quarter: 2014Q1

REPORT INFORMATION
  Report Type: Report from Study
  Country: FR (occurrence: FR)
  Receive Date: 20121205
  Receipt Date: 20140129
  Transmission Date: 20141002
  Serious: Yes (Hospitalization, Other)
  Sender: FDA-Public Use
  Company Number: FR-ROCHE-1162679

PATIENT
  Age: 57 Year
  Sex: Female

DRUGS (3)
  1. RITUXIMAB [Suspect]
     Indication: RHEUMATOID ARTHRITIS
     Route: 041
     Dates: start: 20060202
  2. METHOTREXATE [Concomitant]
  3. CORTANCYL [Concomitant]
     Dosage: 7 MG/D
     Route: 065

REACTIONS (9)
  - Malignant peritoneal neoplasm [Not Recovered/Not Resolved]
  - Pseudomyxoma peritonei [Unknown]
  - Cochlea implant [Unknown]
  - Nausea [Recovered/Resolved]
  - Vomiting [Recovered/Resolved]
  - Bronchitis [Recovered/Resolved]
  - Escherichia urinary tract infection [Recovered/Resolved]
  - Pyrexia [Recovered/Resolved]
  - Rash [Recovered/Resolved]
